FAERS Safety Report 8810119 (Version 1)
Quarter: 2012Q4

REPORT INFORMATION
  Report Type: 
  Country: CA (occurrence: CA)
  Receive Date: 20120926
  Receipt Date: 20120926
  Transmission Date: 20130627
  Serious: Yes (Death, Other)
  Sender: FDA-Public Use
  Company Number: CA-TEVA-360505USA

PATIENT
  Age: 19 Year
  Sex: Female

DRUGS (22)
  1. CITALOPRAM [Suspect]
  2. DIAZEPAM [Suspect]
  3. ATIVAN [Suspect]
  4. ATIVAN [Suspect]
  5. AMITRIPTYLINE [Suspect]
  6. AMITRIPTYLINE [Suspect]
  7. HALDOL [Suspect]
  8. HALDOL [Suspect]
  9. HALDOL [Suspect]
  10. CITALOPRAM [Suspect]
  11. CITALOPRAM [Suspect]
  12. CITALOPRAM [Suspect]
  13. SEROQUEL [Suspect]
  14. SEROQUEL [Suspect]
  15. SEROQUEL [Suspect]
  16. ZYPREXA ZYDIS [Suspect]
  17. ZYPREXA ZYDIS [Suspect]
  18. ZYPREXA ZYDIS [Suspect]
  19. BENZOTROPINE [Concomitant]
  20. STATEX [Concomitant]
  21. TYLENOL [Concomitant]
  22. VIOXX [Concomitant]

REACTIONS (27)
  - Completed suicide [Fatal]
  - Suicidal ideation [Fatal]
  - Asphyxia [Unknown]
  - Drug withdrawal syndrome [Unknown]
  - Cervical vertebral fracture [Unknown]
  - Laceration [Unknown]
  - Disinhibition [Unknown]
  - Personality disorder [Unknown]
  - Social avoidant behaviour [Unknown]
  - Injury [Unknown]
  - Abnormal behaviour [Unknown]
  - Affect lability [Unknown]
  - Aggression [Unknown]
  - Anger [Unknown]
  - Confusional state [Unknown]
  - Depersonalisation [Unknown]
  - Depressed level of consciousness [Unknown]
  - Major depression [Unknown]
  - Dyskinesia [Unknown]
  - Face oedema [Unknown]
  - Gait disturbance [Unknown]
  - Irritability [Unknown]
  - Morbid thoughts [Unknown]
  - Mouth haemorrhage [Unknown]
  - Psychotic disorder [Unknown]
  - Sleep disorder [Unknown]
  - Treatment noncompliance [Unknown]
